FAERS Safety Report 7890259-0 (Version None)
Quarter: 2011Q4

REPORT INFORMATION
  Report Type: 
  Country: None (occurrence: None)
  Receive Date: 20111103
  Receipt Date: 20110808
  Transmission Date: 20120403
  Serious: No
  Sender: FDA-Public Use
  Company Number: US-AMGEN-USASP2011039963

PATIENT
  Sex: Male

DRUGS (5)
  1. ZYRTEC [Concomitant]
  2. MULTIVITAMIN                       /00097801/ [Concomitant]
  3. PRILOSEC [Concomitant]
  4. ENBREL [Suspect]
     Indication: PRODUCT USED FOR UNKNOWN INDICATION
     Dosage: 50 MG, 2 TIMES/WK
  5. FISH OIL [Concomitant]

REACTIONS (3)
  - INJECTION SITE SWELLING [None]
  - PSORIASIS [None]
  - INJECTION SITE ERYTHEMA [None]
